FAERS Safety Report 8834451 (Version 1)
Quarter: 2012Q4

REPORT INFORMATION
  Report Type: Spontaneous
  Country: US (occurrence: None)
  Receive Date: 20121010
  Receipt Date: 20121010
  Transmission Date: 20130627
  Serious: Yes (Other)
  Sender: FDA-Public Use
  Company Number: None

PATIENT
  Age: 30 Year
  Sex: Female
  Weight: 108.86 kg

DRUGS (1)
  1. PARAGARD [Suspect]
     Indication: CONTRACEPTION
     Dates: start: 20080110

REACTIONS (2)
  - Pregnancy with contraceptive device [None]
  - Maternal exposure during pregnancy [None]
